FAERS Safety Report 6252920-3 (Version None)
Quarter: 2009Q3

REPORT INFORMATION
  Report Type: 
  Country: None (occurrence: None)
  Receive Date: 20090701
  Receipt Date: 20090624
  Transmission Date: 20100115
  Serious: Yes (Other)
  Sender: FDA-Public Use
  Company Number: A0793514A

PATIENT
  Age: 57 Year
  Sex: Male

DRUGS (3)
  1. REQUIP [Suspect]
     Indication: MUSCLE SPASMS
     Dosage: 1TAB PER DAY
     Route: 048
     Dates: start: 20090401
  2. REQUIP XL [Suspect]
     Indication: MUSCLE SPASMS
     Dosage: 2MG PER DAY
     Route: 048
     Dates: start: 20090601
  3. ZYRTEC [Concomitant]

REACTIONS (6)
  - ABDOMINAL DISCOMFORT [None]
  - DIZZINESS [None]
  - DRUG INEFFECTIVE [None]
  - LOSS OF CONSCIOUSNESS [None]
  - MIDDLE INSOMNIA [None]
  - MUSCLE SPASMS [None]
